FAERS Safety Report 11523237 (Version 1)
Quarter: 2015Q3

REPORT INFORMATION
  Report Type: Spontaneous
  Country: US (occurrence: US)
  Receive Date: 20150918
  Receipt Date: 20150918
  Transmission Date: 20151125
  Serious: Yes (Hospitalization)
  Sender: FDA-Public Use
  Company Number: US-ROCHE-754744

PATIENT
  Age: 47 Year
  Sex: Male

DRUGS (1)
  1. PEGASYS [Suspect]
     Active Substance: PEGINTERFERON ALFA-2A
     Indication: PRODUCT USED FOR UNKNOWN INDICATION
     Dosage: DOSE: 180 MCG/0.5ML
     Route: 058
     Dates: start: 20100820, end: 20110114

REACTIONS (1)
  - Injection site infection [Recovered/Resolved]

NARRATIVE: CASE EVENT DATE: 20110114
